FAERS Safety Report 19164876 (Version 1)
Quarter: 2021Q2

REPORT INFORMATION
  Report Type: Spontaneous
  Country: US (occurrence: US)
  Receive Date: 20210421
  Receipt Date: 20210421
  Transmission Date: 20210717
  Serious: No
  Sender: FDA-Public Use
  Company Number: US-PARATEK PHARMACEUTICALS, INC.-2021PTK00019

PATIENT
  Age: 53 Year
  Sex: Female
  Weight: 181.41 kg

DRUGS (3)
  1. NUZYRA [Suspect]
     Active Substance: OMADACYCLINE
     Indication: PANNICULITIS
     Dosage: 300 MG, 1X/DAY
     Route: 048
     Dates: start: 20210222, end: 20210223
  2. NUZYRA [Suspect]
     Active Substance: OMADACYCLINE
     Indication: CELLULITIS
  3. UNSPECIFIED MEDICATIONS [Concomitant]
     Active Substance: UNSPECIFIED INGREDIENT

REACTIONS (4)
  - Incorrect dose administered [Recovered/Resolved]
  - Headache [Recovered/Resolved]
  - Nausea [Recovered/Resolved]
  - Dyspepsia [Recovered/Resolved]

NARRATIVE: CASE EVENT DATE: 20210222
